FAERS Safety Report 23276704 (Version 1)
Quarter: 2023Q4

REPORT INFORMATION
  Report Type: Spontaneous
  Country: US (occurrence: None)
  Receive Date: 20231205
  Receipt Date: 20231205
  Transmission Date: 20240110
  Serious: No
  Sender: FDA-Public Use
  Company Number: None

PATIENT
  Age: 59 Year
  Sex: Female
  Weight: 60.78 kg

DRUGS (9)
  1. LAMICTAL [Suspect]
     Active Substance: LAMOTRIGINE
     Indication: Seizure
     Dosage: FREQUENCY : TWICE A DAY;?
     Route: 048
     Dates: start: 202211, end: 202212
  2. LAMICTAL [Suspect]
     Active Substance: LAMOTRIGINE
  3. LAMICTAL [Suspect]
     Active Substance: LAMOTRIGINE
     Dosage: FREQUENCY : TWICE A DAY;?
     Route: 048
  4. SUBVENITE [Suspect]
     Active Substance: LAMOTRIGINE
  5. LAMOTRIGINE [Suspect]
     Active Substance: LAMOTRIGINE
  6. VITAMIN C [Concomitant]
     Active Substance: ASCORBIC ACID
  7. Vit D + K [Concomitant]
  8. ZINC [Concomitant]
     Active Substance: PYRITHIONE ZINC\ZINC\ZINC CHLORIDE
  9. COENZYME Q10 [Concomitant]
     Active Substance: DIETARY SUPPLEMENT\UBIDECARENONE

REACTIONS (12)
  - Rash [None]
  - Rash erythematous [None]
  - Rash pruritic [None]
  - Therapy change [None]
  - Balance disorder [None]
  - Loss of consciousness [None]
  - Fall [None]
  - Craniofacial fracture [None]
  - Headache [None]
  - Concussion [None]
  - Joint swelling [None]
  - Arthralgia [None]

NARRATIVE: CASE EVENT DATE: 20221201
